FAERS Safety Report 5610211-5 (Version None)
Quarter: 2008Q1

REPORT INFORMATION
  Report Type: 
  Country: None (occurrence: None)
  Receive Date: 20080131
  Receipt Date: 20080125
  Transmission Date: 20080703
  Serious: Yes (Death, Life-Threatening, Hospitalization)
  Sender: FDA-Public Use
  Company Number: US-GENENTECH-254637

PATIENT
  Sex: Male

DRUGS (4)
  1. BEVACIZUMAB [Suspect]
     Indication: RECTAL CANCER
     Dosage: UNK UNK, UNKNOWN
     Route: 065
     Dates: start: 20070904
  2. FLUOROURACIL [Concomitant]
     Indication: RECTAL CANCER
     Dates: start: 20070904
  3. LEUCOVORIN CALCIUM [Concomitant]
     Indication: RECTAL CANCER
     Dates: start: 20070904
  4. OXALIPLATIN [Concomitant]
     Indication: RECTAL CANCER
     Dosage: UNK, UNK
     Dates: start: 20070904

REACTIONS (2)
  - CARDIO-RESPIRATORY ARREST [None]
  - DEATH [None]
